FAERS Safety Report 5535448-5 (Version None)
Quarter: 2007Q4

REPORT INFORMATION
  Report Type: 
  Country: None (occurrence: None)
  Receive Date: 20071204
  Receipt Date: 20071204
  Transmission Date: 20080405
  Serious: Yes (Death)
  Sender: FDA-Public Use
  Company Number: None

PATIENT
  Age: 60 Year
  Sex: Female
  Weight: 81.6475 kg

DRUGS (1)
  1. CHANTIX [Suspect]
     Indication: SMOKING CESSATION THERAPY
     Dosage: PO
     Route: 048
     Dates: start: 20070810, end: 20071111

REACTIONS (6)
  - COMPLETED SUICIDE [None]
  - DELUSION [None]
  - GUN SHOT WOUND [None]
  - HEAD INJURY [None]
  - LOWER LIMB FRACTURE [None]
  - THINKING ABNORMAL [None]
